FAERS Safety Report 7278791-4 (Version None)
Quarter: 2011Q1

REPORT INFORMATION
  Report Type: 
  Country: None (occurrence: None)
  Receive Date: 20110207
  Receipt Date: 20110131
  Transmission Date: 20110831
  Serious: Yes (Hospitalization)
  Sender: FDA-Public Use
  Company Number: NL-MEDIMMUNE-MEDI-0012413

PATIENT
  Sex: Female
  Weight: 7.67 kg

DRUGS (2)
  1. SYNAGIS [Suspect]
     Route: 030
     Dates: start: 20100913, end: 20110103
  2. SYNAGIS [Suspect]
     Route: 030
     Dates: start: 20110131, end: 20110131

REACTIONS (2)
  - NASOPHARYNGITIS [None]
  - SENSE OF OPPRESSION [None]
